FAERS Safety Report 17790477 (Version 1)
Quarter: 2020Q2

REPORT INFORMATION
  Report Type: Spontaneous
  Country: US (occurrence: US)
  Receive Date: 20200514
  Receipt Date: 20200514
  Transmission Date: 20200714
  Serious: Yes (Other)
  Sender: FDA-Public Use
  Company Number: None

PATIENT
  Sex: Female

DRUGS (11)
  1. COENZYME Q10 [Concomitant]
     Active Substance: UBIDECARENONE
  2. LEUCOVOIR [Concomitant]
  3. ENBREL [Suspect]
     Active Substance: ETANERCEPT
     Indication: RHEUMATOID ARTHRITIS
     Dosage: ?          OTHER FREQUENCY:EVERY WEEK;?
     Route: 058
     Dates: start: 20191015
  4. VALTREZ [Concomitant]
  5. VITAMIN D [Concomitant]
     Active Substance: VITAMIN D NOS
  6. PAROXETINE. [Concomitant]
     Active Substance: PAROXETINE
  7. ASPIRIN. [Concomitant]
     Active Substance: ASPIRIN
  8. FLAX SEED [Concomitant]
     Active Substance: FLAX SEED
  9. NEURONTIN [Concomitant]
     Active Substance: GABAPENTIN
  10. METHOTREXATE. [Concomitant]
     Active Substance: METHOTREXATE
  11. CLARITIN [Concomitant]
     Active Substance: LORATADINE

REACTIONS (1)
  - Neoplasm malignant [None]
